FAERS Safety Report 7517182-5 (Version None)
Quarter: 2011Q2

REPORT INFORMATION
  Report Type: 
  Country: None (occurrence: None)
  Receive Date: 20110601
  Receipt Date: 20110525
  Transmission Date: 20111010
  Serious: Yes (Hospitalization)
  Sender: FDA-Public Use
  Company Number: GB-GILEAD-2011-0039932

PATIENT

DRUGS (12)
  1. RANEXA [Suspect]
     Dates: start: 20110506, end: 20110522
  2. TRIMETHOPRIM [Concomitant]
     Route: 048
     Dates: start: 20110520, end: 20110522
  3. ISOSORBIDE MONONITRATE [Concomitant]
     Route: 048
  4. RANEXA [Suspect]
     Indication: PRODUCT USED FOR UNKNOWN INDICATION
     Route: 048
     Dates: start: 20110407, end: 20110522
  5. SIMVASTATIN [Suspect]
     Dates: start: 20060701, end: 20110522
  6. CARVEDILOL [Concomitant]
     Route: 048
  7. RAMIPRIL [Concomitant]
     Route: 048
  8. AMLODIPINE [Concomitant]
     Route: 048
  9. NAFTIDROFURYL [Concomitant]
     Route: 048
  10. NICORANDIL [Concomitant]
     Route: 048
  11. ASPIRIN [Concomitant]
     Route: 048
  12. NITROGLYCERIN [Concomitant]
     Route: 060

REACTIONS (3)
  - RHABDOMYOLYSIS [None]
  - BLOOD CREATINE PHOSPHOKINASE INCREASED [None]
  - DRUG INTERACTION [None]
